FAERS Safety Report 5030087-7 (Version None)
Quarter: 2006Q2

REPORT INFORMATION
  Report Type: 
  Country: None (occurrence: None)
  Receive Date: 20060504
  Receipt Date: 20060220
  Transmission Date: 20061013
  Serious: No
  Sender: FDA-Public Use
  Company Number: 200512958BWH

PATIENT
  Sex: Male

DRUGS (2)
  1. LEVITRA [Suspect]
     Indication: ERECTILE DYSFUNCTION
     Dosage: 10 MG PRN, ORAL
     Route: 048
  2. HYTRIN [Concomitant]

REACTIONS (3)
  - ERECTILE DYSFUNCTION [None]
  - INSOMNIA [None]
  - SINUS CONGESTION [None]
